FAERS Safety Report 9530274 (Version 1)
Quarter: 2013Q3

REPORT INFORMATION
  Report Type: Spontaneous
  Country: US (occurrence: US)
  Receive Date: 20130917
  Receipt Date: 20130917
  Transmission Date: 20140515
  Serious: Yes (Hospitalization, Other)
  Sender: FDA-Public Use
  Company Number: US-RB-058398-13

PATIENT
  Age: 34 Year
  Sex: Male

DRUGS (3)
  1. SUBOXONE FILM [Suspect]
     Dosage: SUBOXONE FILM
     Route: 060
     Dates: start: 201304, end: 2013
  2. SUBOXONE FILM [Suspect]
     Indication: DRUG DEPENDENCE
     Dosage: SUBOXONE FILM; MEDICALLY SUPERVISED TAPERED DOSING SCHEDULE
     Route: 060
     Dates: start: 2013, end: 201307
  3. SUBOXONE FILM [Suspect]
     Dosage: SUBOXONE FILM
     Route: 060
     Dates: start: 201307, end: 20130810

REACTIONS (7)
  - Wrong technique in drug usage process [Recovered/Resolved]
  - Road traffic accident [Recovered/Resolved]
  - Spinal fracture [Recovered/Resolved]
  - Laceration [Recovered/Resolved]
  - Eye penetration [Recovered/Resolved]
  - Radius fracture [Recovered/Resolved]
  - Pain [Recovered/Resolved]
